FAERS Safety Report 15129104 (Version 1)
Quarter: 2018Q3

REPORT INFORMATION
  Report Type: Spontaneous
  Country: US (occurrence: US)
  Receive Date: 20180614
  Receipt Date: 20180614
  Transmission Date: 20181010
  Serious: Yes (Other)
  Sender: FDA-Public Use
  Company Number: None

PATIENT
  Age: 64 Year
  Sex: Female
  Weight: 69.4 kg

DRUGS (1)
  1. LIOTHYRONINE [Suspect]
     Active Substance: LIOTHYRONINE

REACTIONS (3)
  - Hormone level abnormal [None]
  - Thyroid disorder [None]
  - Palpitations [None]

NARRATIVE: CASE EVENT DATE: 20170222
